FAERS Safety Report 12456321 (Version 2)
Quarter: 2016Q2

REPORT INFORMATION
  Report Type: Report from Study
  Country: US (occurrence: US)
  Receive Date: 20160610
  Receipt Date: 20160617
  Transmission Date: 20160815
  Serious: Yes (Hospitalization, Other)
  Sender: FDA-Public Use
  Company Number: US-GILEAD-2016-0217818

PATIENT
  Age: 75 Year
  Sex: Female

DRUGS (23)
  1. MAGNESIUM [Concomitant]
     Active Substance: MAGNESIUM
  2. VITAMIN D                          /00107901/ [Concomitant]
     Active Substance: ERGOCALCIFEROL
  3. GABAPENTIN. [Concomitant]
     Active Substance: GABAPENTIN
  4. MONTELUKAST [Concomitant]
     Active Substance: MONTELUKAST SODIUM
  5. POTASSIUM [Concomitant]
     Active Substance: POTASSIUM
  6. COENZYME Q10 [Concomitant]
     Active Substance: UBIDECARENONE
  7. SELENIUM [Concomitant]
     Active Substance: SELENIUM
  8. WARFARIN [Concomitant]
     Active Substance: WARFARIN
  9. UBIQUINOL [Concomitant]
     Active Substance: UBIQUINOL
  10. OMEPRAZOLE. [Concomitant]
     Active Substance: OMEPRAZOLE
  11. LYRICA [Concomitant]
     Active Substance: PREGABALIN
  12. METOLAZONE. [Concomitant]
     Active Substance: METOLAZONE
  13. SILDENAFIL. [Concomitant]
     Active Substance: SILDENAFIL
  14. ALBUTEROL                          /00139501/ [Concomitant]
     Active Substance: ALBUTEROL
  15. LYSINE [Concomitant]
     Active Substance: LYSINE
  16. CALCIUM [Concomitant]
     Active Substance: CALCIUM
  17. QVAR [Concomitant]
     Active Substance: BECLOMETHASONE DIPROPIONATE
  18. FLONASE                            /00908302/ [Concomitant]
     Active Substance: MOMETASONE FUROATE
  19. MULTI VITAMIN [Concomitant]
     Active Substance: VITAMINS
  20. AMBRISENTAN [Suspect]
     Active Substance: AMBRISENTAN
     Indication: PULMONARY HYPERTENSION
     Dosage: 10 MG, QD
     Route: 065
     Dates: start: 20140917
  21. QUININE [Concomitant]
     Active Substance: QUININE
  22. LEVOTHYROXIN [Concomitant]
     Active Substance: LEVOTHYROXINE
  23. LIOTHYRONINE [Concomitant]
     Active Substance: LIOTHYRONINE

REACTIONS (2)
  - Drug dose omission [Recovered/Resolved]
  - Pericardial effusion [Recovered/Resolved]

NARRATIVE: CASE EVENT DATE: 20160524
